FAERS Safety Report 19035910 (Version 1)
Quarter: 2021Q1

REPORT INFORMATION
  Report Type: Spontaneous
  Country: US (occurrence: US)
  Receive Date: 20210321
  Receipt Date: 20210321
  Transmission Date: 20210420
  Serious: No
  Sender: FDA-Public Use
  Company Number: US-SA-2021SA094475

PATIENT
  Age: 55 Year
  Sex: Female
  Weight: 99.77 kg

DRUGS (11)
  1. WELLBUTRIN [Concomitant]
     Active Substance: BUPROPION HYDROCHLORIDE
  2. CARVEDILOL. [Concomitant]
     Active Substance: CARVEDILOL
  3. BIOTIN [Concomitant]
     Active Substance: BIOTIN
  4. AUBAGIO [Suspect]
     Active Substance: TERIFLUNOMIDE
     Indication: MULTIPLE SCLEROSIS
     Dosage: 14 MG, QD
     Route: 048
     Dates: start: 20191127
  5. REQUIP [Concomitant]
     Active Substance: ROPINIROLE HYDROCHLORIDE
  6. MULTIVITAMINS [VITAMINS NOS] [Concomitant]
     Active Substance: VITAMINS
  7. POTASSIUM 99 [Concomitant]
  8. LASIX [Concomitant]
     Active Substance: FUROSEMIDE
  9. VITAMIN B12 [Concomitant]
     Active Substance: CYANOCOBALAMIN
  10. CELEXA [CELECOXIB] [Concomitant]
     Active Substance: CELECOXIB
  11. BACLOFEN. [Concomitant]
     Active Substance: BACLOFEN

REACTIONS (2)
  - Drug ineffective [Unknown]
  - Fall [Unknown]
